FAERS Safety Report 6175598-6 (Version None)
Quarter: 2009Q2

REPORT INFORMATION
  Report Type: 
  Country: None (occurrence: None)
  Receive Date: 20090501
  Receipt Date: 20090422
  Transmission Date: 20091009
  Serious: Yes (Hospitalization, Other)
  Sender: FDA-Public Use
  Company Number: FR-BAYER-200918867GPV

PATIENT
  Age: 34 Year
  Sex: Female

DRUGS (2)
  1. MIRENA [Suspect]
     Indication: DRUG USE FOR UNKNOWN INDICATION
     Route: 015
  2. PENTASA [Concomitant]
     Indication: CROHN'S DISEASE

REACTIONS (3)
  - PAIN [None]
  - PYREXIA [None]
  - UTERINE RUPTURE [None]
